FAERS Safety Report 20938286 (Version 1)
Quarter: 2022Q2

REPORT INFORMATION
  Report Type: Spontaneous
  Country: US (occurrence: None)
  Receive Date: 20220608
  Receipt Date: 20220608
  Transmission Date: 20220721
  Serious: No
  Sender: FDA-Public Use
  Company Number: None

PATIENT
  Age: 73 Year
  Sex: Female
  Weight: 75.75 kg

DRUGS (3)
  1. RINVOQ [Suspect]
     Active Substance: UPADACITINIB
     Indication: Osteoarthritis
     Dosage: FREQUENCY : DAILY;?
     Route: 048
     Dates: start: 202105
  2. RINVOQ [Suspect]
     Active Substance: UPADACITINIB
     Indication: Connective tissue disorder
  3. RINVOQ [Suspect]
     Active Substance: UPADACITINIB
     Indication: Rheumatoid arthritis

REACTIONS (3)
  - Urinary tract infection [None]
  - Cardiac disorder [None]
  - Therapy interrupted [None]
